FAERS Safety Report 7384014-8 (Version None)
Quarter: 2011Q1

REPORT INFORMATION
  Report Type: 
  Country: None (occurrence: None)
  Receive Date: 20110330
  Receipt Date: 20110323
  Transmission Date: 20110831
  Serious: Yes (Other)
  Sender: FDA-Public Use
  Company Number: JP-NAPPMUNDI-MAG-2011-0001468

PATIENT
  Age: 72 Year
  Sex: Male

DRUGS (5)
  1. OXYCODONE HCL [Suspect]
     Dosage: 60 MG, DAILY
     Route: 048
  2. OXYCODONE HCL [Suspect]
     Indication: PRODUCT USED FOR UNKNOWN INDICATION
     Dosage: 40 MG, DAILY
     Route: 048
  3. OXYCODONE HCL [Suspect]
     Dosage: 50 MG, DAILY
     Route: 048
  4. OXYCODONE HCL [Suspect]
     Indication: PRODUCT USED FOR UNKNOWN INDICATION
     Dosage: 5 MG, DAILY
     Route: 048
  5. OXYCODONE HCL [Suspect]
     Dosage: 40 MG, DAILY
     Route: 048

REACTIONS (2)
  - DELIRIUM [None]
  - NAUSEA [None]
